FAERS Safety Report 9358155 (Version 1)
Quarter: 2013Q2

REPORT INFORMATION
  Report Type: Spontaneous
  Country: IT (occurrence: IT)
  Receive Date: 20130620
  Receipt Date: 20130620
  Transmission Date: 20140414
  Serious: Yes (Life-Threatening)
  Sender: FDA-Public Use
  Company Number: CHPA2013IT009986

PATIENT
  Sex: Female

DRUGS (3)
  1. IBUPROFEN [Suspect]
     Dosage: UNK, UNK
  2. PARACETAMOL [Suspect]
     Dosage: UNK, UNK
  3. IBUPROFEN SODIUM [Suspect]
     Dosage: UNK, UNK

REACTIONS (5)
  - Cholestasis [Recovered/Resolved]
  - Hypocalcaemia [Recovered/Resolved]
  - Liver disorder [Recovered/Resolved]
  - Sensory disturbance [Recovered/Resolved]
  - Renal failure acute [Recovered/Resolved]
